FAERS Safety Report 9826017 (Version 1)
Quarter: 2013Q4

REPORT INFORMATION
  Report Type: Spontaneous
  Country: US (occurrence: None)
  Receive Date: 20131223
  Receipt Date: 20131223
  Transmission Date: 20140711
  Serious: Yes (Other)
  Sender: FDA-Public Use
  Company Number: 220576LEO

PATIENT
  Sex: Female

DRUGS (4)
  1. PICATO [Suspect]
     Indication: PHOTODERMATOSIS
     Route: 061
     Dates: start: 20130208, end: 20130210
  2. LEVOXYL(LEVOTHYROXINE SODIUM)(100 MCG, TABLET) [Concomitant]
  3. LOVASTATIN(LOVASTATIN) [Concomitant]
  4. TRIAMCINOLONE/HCTZ(TRAIMCINOLONE) [Concomitant]

REACTIONS (4)
  - Erythema [None]
  - Pain [None]
  - Swelling [None]
  - Scab [None]
